APPROVED DRUG PRODUCT: ALPRAZOLAM
Active Ingredient: ALPRAZOLAM
Strength: 2MG
Dosage Form/Route: TABLET;ORAL
Application: A207507 | Product #004
Applicant: CHARTWELL RX SCIENCES LLC
Approved: Jul 9, 2018 | RLD: No | RS: No | Type: DISCN